FAERS Safety Report 4612383-8 (Version None)
Quarter: 2005Q2

REPORT INFORMATION
  Report Type: 
  Country: None (occurrence: None)
  Receive Date: 20050308
  Receipt Date: 20041115
  Transmission Date: 20051028
  Serious: Yes (Other)
  Sender: FDA-Public Use
  Company Number: 2004UW23509

PATIENT
  Age: 63 Year
  Sex: Female
  Weight: 102.51 kg

DRUGS (3)
  1. CRESTOR [Suspect]
     Indication: BLOOD CHOLESTEROL INCREASED
     Dosage: 10 MG PO
     Route: 048
  2. PREMARIN [Concomitant]
  3. HYZAAR [Concomitant]

REACTIONS (2)
  - ABDOMINAL DISTENSION [None]
  - RASH [None]
